FAERS Safety Report 7842481-7 (Version None)
Quarter: 2011Q4

REPORT INFORMATION
  Report Type: 
  Country: None (occurrence: None)
  Receive Date: 20111025
  Receipt Date: 20111011
  Transmission Date: 20120403
  Serious: Yes (Death)
  Sender: FDA-Public Use
  Company Number: PHHY2011DE92038

PATIENT
  Age: 51 Year
  Sex: Female

DRUGS (2)
  1. CYCLOSPORINE [Suspect]
     Indication: STEM CELL TRANSPLANT
     Dosage: 375 MG, DAILY
  2. MYCOPHENOLATE MOFETIL [Concomitant]
     Dosage: 2 G, UNK

REACTIONS (8)
  - EYE INFECTION FUNGAL [None]
  - CENTRAL NERVOUS SYSTEM INFECTION [None]
  - SCLERAL HAEMORRHAGE [None]
  - VITREOUS DISORDER [None]
  - ASPERGILLOSIS [None]
  - PLATELET COUNT DECREASED [None]
  - PULMONARY MYCOSIS [None]
  - SYSTEMIC MYCOSIS [None]
